FAERS Safety Report 10220626 (Version 1)
Quarter: 2014Q2

REPORT INFORMATION
  Report Type: Spontaneous
  Country: US (occurrence: None)
  Receive Date: 20140604
  Receipt Date: 20140604
  Transmission Date: 20141212
  Serious: Yes (Life-Threatening, Other)
  Sender: FDA-Public Use
  Company Number: 001743859A

PATIENT
  Age: 33 Year
  Sex: Female

DRUGS (2)
  1. PROACTIV + COMPLEXION PERFECTING HYDRATOR [Suspect]
     Indication: ACNE
     Dosage: ONCE DAILY DERMAL
     Dates: start: 20140501
  2. ALIVE VITAMINS [Concomitant]

REACTIONS (4)
  - Throat tightness [None]
  - Swelling [None]
  - Dyspnoea [None]
  - Skin reaction [None]
